FAERS Safety Report 20029496 (Version 1)
Quarter: 2021Q4

REPORT INFORMATION
  Report Type: Spontaneous
  Country: None (occurrence: US)
  Receive Date: 20211103
  Receipt Date: 20211103
  Transmission Date: 20220303
  Serious: No
  Sender: FDA-Public Use
  Company Number: US-The ACME Laboratories Ltd-2121398

PATIENT
  Age: 84 Year
  Sex: Female
  Weight: 54.545 kg

DRUGS (1)
  1. ZOLPIDEM TARTRATE [Suspect]
     Active Substance: ZOLPIDEM TARTRATE
     Indication: Sleep disorder
     Route: 048
     Dates: start: 202109

REACTIONS (3)
  - Drug ineffective [Unknown]
  - Wrong technique in product usage process [Recovered/Resolved with Sequelae]
  - Product substitution issue [Recovered/Resolved with Sequelae]

NARRATIVE: CASE EVENT DATE: 20210901
